FAERS Safety Report 12444680 (Version 1)
Quarter: 2016Q2

REPORT INFORMATION
  Report Type: Spontaneous
  Country: US (occurrence: US)
  Receive Date: 20160607
  Receipt Date: 20160607
  Transmission Date: 20160815
  Serious: Yes (Hospitalization, Other)
  Sender: FDA-Public Use
  Company Number: US-IMPAX LABORATORIES, INC-2016-IPXL-00589

PATIENT
  Age: 11 Month
  Sex: Male

DRUGS (1)
  1. METHADONE HYDROCHLORIDE. [Suspect]
     Active Substance: METHADONE HYDROCHLORIDE
     Indication: DRUG WITHDRAWAL MAINTENANCE THERAPY
     Dosage: UNK
     Route: 065

REACTIONS (6)
  - Respiratory failure [Unknown]
  - Hypotension [Unknown]
  - Accidental exposure to product [Unknown]
  - Hypoglycaemia [Unknown]
  - Miosis [Unknown]
  - Blood insulin increased [Unknown]
